FAERS Safety Report 14867620 (Version 2)
Quarter: 2018Q2

REPORT INFORMATION
  Report Type: Spontaneous
  Country: FR (occurrence: FR)
  Receive Date: 20180508
  Receipt Date: 20180517
  Transmission Date: 20180711
  Serious: Yes (Hospitalization)
  Sender: FDA-Public Use
  Company Number: FR-ASTRAZENECA-2018SE59817

PATIENT
  Age: 67 Year
  Sex: Male
  Weight: 103 kg

DRUGS (10)
  1. METFORMIN [Suspect]
     Active Substance: METFORMIN HYDROCHLORIDE
     Indication: TYPE 2 DIABETES MELLITUS
     Dosage: 2 G DAILY (NON AZ DRUG)
     Route: 048
     Dates: end: 20180215
  2. PERINDOPRIL [Suspect]
     Active Substance: PERINDOPRIL
     Indication: HYPERTENSION
     Route: 048
     Dates: end: 20180215
  3. LERCAN [Suspect]
     Active Substance: LERCANIDIPINE
     Indication: HYPERTENSION
     Route: 048
     Dates: end: 20180215
  4. ESOMEPRAZOLE [Suspect]
     Active Substance: ESOMEPRAZOLE
     Indication: PRODUCT USED FOR UNKNOWN INDICATION
     Route: 048
     Dates: end: 20180215
  5. DIAMICRON [Suspect]
     Active Substance: GLICLAZIDE
     Indication: TYPE 2 DIABETES MELLITUS
     Route: 048
     Dates: end: 20180215
  6. BISOPROLOL [Suspect]
     Active Substance: BISOPROLOL
     Indication: HYPERTENSION
     Route: 048
     Dates: end: 20180215
  7. TARDYFERON [Suspect]
     Active Substance: FERROUS SULFATE
     Indication: MINERAL SUPPLEMENTATION
     Route: 048
     Dates: end: 20180215
  8. PREVISCAN (FLUINDIONE) [Suspect]
     Active Substance: FLUINDIONE
     Indication: ATRIAL FIBRILLATION
     Route: 048
     Dates: end: 20180215
  9. SPIRONOLACTONE. [Suspect]
     Active Substance: SPIRONOLACTONE
     Indication: HYPERTENSION
     Route: 048
     Dates: end: 20180215
  10. CATAPRESSAN [Suspect]
     Active Substance: CLONIDINE
     Indication: HYPERTENSION
     Route: 048
     Dates: end: 20180215

REACTIONS (3)
  - Metabolic acidosis [Recovered/Resolved]
  - Acute kidney injury [Recovered/Resolved]
  - Hyperkalaemia [Recovered/Resolved]

NARRATIVE: CASE EVENT DATE: 20180215
